FAERS Safety Report 25349847 (Version 1)
Quarter: 2025Q2

REPORT INFORMATION
  Report Type: Spontaneous
  Country: US (occurrence: US)
  Receive Date: 20250523
  Receipt Date: 20250523
  Transmission Date: 20250717
  Serious: No
  Sender: GLAXOSMITHKLINE
  Company Number: US-GSK-US2025059942

PATIENT
  Sex: Female

DRUGS (1)
  1. TRELEGY ELLIPTA [Suspect]
     Active Substance: FLUTICASONE FUROATE\UMECLIDINIUM BROMIDE\VILANTEROL TRIFENATATE
     Indication: Asthma
     Dosage: 1 DF, QD, 100/62.5/25 MCG
     Route: 055

REACTIONS (6)
  - Dizziness [Recovering/Resolving]
  - Wheezing [Not Recovered/Not Resolved]
  - Fear [Unknown]
  - Head discomfort [Recovering/Resolving]
  - Cough [Not Recovered/Not Resolved]
  - Intentional dose omission [Unknown]
